FAERS Safety Report 20102666 (Version 3)
Quarter: 2022Q1

REPORT INFORMATION
  Report Type: Report from Study
  Country: MA (occurrence: MA)
  Receive Date: 20211123
  Receipt Date: 20220120
  Transmission Date: 20220423
  Serious: Yes (Other)
  Sender: FDA-Public Use
  Company Number: MA-NOVARTISPH-NVSC2021MA258859

PATIENT
  Sex: Female
  Weight: 71 kg

DRUGS (2)
  1. AFINITOR [Suspect]
     Active Substance: EVEROLIMUS
     Indication: Breast cancer
     Dosage: 5 MG (2 TABLETS PER DAY)
     Route: 048
     Dates: start: 20200318
  2. IBRANCE [Suspect]
     Active Substance: PALBOCICLIB
     Indication: Breast cancer
     Dosage: UNKNOWN
     Route: 065

REACTIONS (6)
  - Carbohydrate metabolism disorder [Unknown]
  - Metastases to bone [Unknown]
  - Bone lesion [Unknown]
  - Bone marrow disorder [Unknown]
  - Breast calcifications [Unknown]
  - Thyroid disorder [Unknown]
